FAERS Safety Report 6925950-3 (Version None)
Quarter: 2010Q3

REPORT INFORMATION
  Report Type: 
  Country: None (occurrence: None)
  Receive Date: 20100816
  Receipt Date: 20100804
  Transmission Date: 20110219
  Serious: Yes (Other)
  Sender: FDA-Public Use
  Company Number: DE-PFIZER INC-2010077468

PATIENT
  Age: 46 Year
  Sex: Female
  Weight: 62 kg

DRUGS (3)
  1. LYRICA [Suspect]
     Dosage: 300 MG/DAY
     Route: 048
     Dates: start: 20100401, end: 20100101
  2. MARCUMAR [Concomitant]
     Indication: ANTIPHOSPHOLIPID SYNDROME
     Dosage: UNK
     Dates: start: 19900101
  3. DECORTIN-H [Concomitant]
     Dosage: UNK
     Dates: start: 20100101

REACTIONS (2)
  - LEUKOPENIA [None]
  - NEUTROPENIA [None]
